FAERS Safety Report 24031623 (Version 1)
Quarter: 2024Q2

REPORT INFORMATION
  Report Type: Spontaneous
  Country: US (occurrence: US)
  Receive Date: 20240629
  Receipt Date: 20240629
  Transmission Date: 20240716
  Serious: Yes (Hospitalization)
  Sender: FDA-Public Use
  Company Number: US-002147023-NVSC2024US135168

PATIENT
  Age: 24 Year
  Sex: Male

DRUGS (1)
  1. GLYCOPYRRONIUM [Suspect]
     Active Substance: GLYCOPYRRONIUM
     Indication: Hyperhidrosis
     Dosage: UNK
     Route: 065

REACTIONS (2)
  - Heat stroke [Unknown]
  - Product use in unapproved indication [Unknown]
